FAERS Safety Report 15626954 (Version 1)
Quarter: 2018Q4

REPORT INFORMATION
  Report Type: Report from Study
  Country: CN (occurrence: CN)
  Receive Date: 20181116
  Receipt Date: 20181116
  Transmission Date: 20190205
  Serious: Yes (Other)
  Sender: FDA-Public Use
  Company Number: CN-MYLANLABS-2018M1086852

PATIENT
  Age: 27 Year
  Sex: Female

DRUGS (4)
  1. FLUDARABINE [Suspect]
     Active Substance: FLUDARABINE PHOSPHATE
     Indication: LUNG ADENOCARCINOMA
     Dosage: RECEIVED FOR 3 DAYS.
     Route: 065
  2. CYCLOPHOSPHAMIDE. [Suspect]
     Active Substance: CYCLOPHOSPHAMIDE
     Indication: LUNG ADENOCARCINOMA
     Dosage: RECEIVED FOR 2 DAYS.
     Route: 065
  3. INTERLEUKIN-2 [Suspect]
     Active Substance: ALDESLEUKIN
     Indication: LUNG ADENOCARCINOMA
     Dosage: RECEIVED FOR 14 CONSECUTIVE DAYS.
     Route: 058
  4. CHEMOTHERAPEUTICS [Suspect]
     Active Substance: UNSPECIFIED INGREDIENT
     Indication: LUNG ADENOCARCINOMA
     Dosage: ON 1-3 DAYS FOLLOWED BY INTERLEUKIN 2
     Route: 041

REACTIONS (6)
  - Hyperhidrosis [Unknown]
  - White blood cell count decreased [Recovered/Resolved]
  - Fatigue [Unknown]
  - Anaemia [Recovered/Resolved]
  - Pyrexia [Unknown]
  - Nausea [Unknown]
